FAERS Safety Report 9278928 (Version 2)
Quarter: 2013Q3

REPORT INFORMATION
  Report Type: Spontaneous
  Country: US (occurrence: US)
  Receive Date: 20130508
  Receipt Date: 20130722
  Transmission Date: 20140515
  Serious: Yes (Other)
  Sender: FDA-Public Use
  Company Number: US-JNJFOC-20130414413

PATIENT
  Age: 66 Year
  Sex: Female

DRUGS (4)
  1. RISPERIDONE [Suspect]
     Indication: SCHIZOAFFECTIVE DISORDER
     Route: 065
  2. RISPERIDONE [Suspect]
     Indication: SCHIZOAFFECTIVE DISORDER
     Route: 065
  3. DONEPEZIL [Suspect]
     Indication: MEMORY IMPAIRMENT
     Dosage: INCREMENTAL DOSES UPTO 10 MG
     Route: 065
  4. MIRTAZAPINE [Concomitant]
     Indication: SCHIZOAFFECTIVE DISORDER
     Route: 065

REACTIONS (4)
  - Hallucination, visual [Unknown]
  - Agitation [Recovered/Resolved]
  - Pleurothotonus [Recovered/Resolved]
  - Memory impairment [Unknown]
